FAERS Safety Report 15968111 (Version 1)
Quarter: 2019Q1

REPORT INFORMATION
  Report Type: Spontaneous
  Country: US (occurrence: US)
  Receive Date: 20190215
  Receipt Date: 20190215
  Transmission Date: 20190418
  Serious: Yes (Other)
  Sender: FDA-Public Use
  Company Number: US-LEITERS-2062736

PATIENT

DRUGS (1)
  1. CEFUROXIME 10 MG/ML IN 0.9% SODIUM CHLORIDE, INTRAVITREAL INJECTION, 1 [Suspect]
     Active Substance: CEFUROXIME SODIUM
     Route: 047
     Dates: start: 20190206, end: 20190206

REACTIONS (1)
  - Corneal oedema [Unknown]

NARRATIVE: CASE EVENT DATE: 20190207
